FAERS Safety Report 8515579-8 (Version None)
Quarter: 2012Q3

REPORT INFORMATION
  Report Type: 
  Country: None (occurrence: None)
  Receive Date: 20120717
  Receipt Date: 20120710
  Transmission Date: 20120928
  Serious: Yes (Hospitalization, Other)
  Sender: FDA-Public Use
  Company Number: PHHY2011FR07309

PATIENT
  Age: 32 Year
  Sex: Female

DRUGS (7)
  1. ISONIAZID [Suspect]
  2. ETHAMBUTOL HYDROCHLORIDE [Concomitant]
     Dosage: UNK
  3. MOXIFLOXACIN [Concomitant]
  4. PYRAZINAMIDE [Concomitant]
     Dosage: UNK
  5. BELATACEPT [Concomitant]
     Indication: IMMUNOSUPPRESSION
     Dosage: UNK
  6. PREDNISOLONE [Concomitant]
     Indication: IMMUNOSUPPRESSION
     Dosage: UNK
  7. RIFAMPICIN [Concomitant]
     Dosage: UNK

REACTIONS (3)
  - ACUTE HEPATIC FAILURE [None]
  - JAUNDICE [None]
  - HEPATITIS [None]
